FAERS Safety Report 15052167 (Version 1)
Quarter: 2018Q2

REPORT INFORMATION
  Report Type: Spontaneous
  Country: US (occurrence: US)
  Receive Date: 20180622
  Receipt Date: 20180622
  Transmission Date: 20180711
  Serious: No
  Sender: FDA-Public Use
  Company Number: US-DENDREON PHARMACEUTICALS LLC-2017DEN000178

PATIENT
  Age: 81 Year
  Sex: Male

DRUGS (1)
  1. PROVENGE [Suspect]
     Active Substance: SIPULEUCEL-T
     Indication: PROSTATE CANCER
     Dosage: UNK
     Route: 042

REACTIONS (3)
  - Cardiac disorder [Unknown]
  - Hypotension [Unknown]
  - Swelling [Unknown]

NARRATIVE: CASE EVENT DATE: 20171116
